FAERS Safety Report 17907262 (Version 1)
Quarter: 2020Q2

REPORT INFORMATION
  Report Type: Spontaneous
  Country: US (occurrence: US)
  Receive Date: 20200617
  Receipt Date: 20200617
  Transmission Date: 20200714
  Serious: Yes (Disabling)
  Sender: FDA-Public Use
  Company Number: None

PATIENT
  Age: 67 Year
  Sex: Male
  Weight: 80.1 kg

DRUGS (1)
  1. CIPROFLOXACIN. [Suspect]
     Active Substance: CIPROFLOXACIN
     Indication: CYSTITIS
     Dates: start: 20180926, end: 20180930

REACTIONS (12)
  - Neuropathy peripheral [None]
  - Pain in extremity [None]
  - Insomnia [None]
  - Hypertonic bladder [None]
  - Depression [None]
  - Chorioretinal folds [None]
  - Panic attack [None]
  - Gait disturbance [None]
  - Asthenia [None]
  - Pain [None]
  - Anxiety [None]
  - Chest discomfort [None]

NARRATIVE: CASE EVENT DATE: 20181007
